FAERS Safety Report 16047858 (Version 2)
Quarter: 2019Q3

REPORT INFORMATION
  Report Type: Report from Study
  Country: FR (occurrence: FR)
  Receive Date: 20190307
  Receipt Date: 20190702
  Transmission Date: 20191004
  Serious: Yes (Hospitalization)
  Sender: FDA-Public Use
  Company Number: FR-MYLANLABS-2019M1020442

PATIENT
  Age: 71 Year
  Sex: Male
  Weight: 78 kg

DRUGS (29)
  1. CARBOPLATIN. [Suspect]
     Active Substance: CARBOPLATIN
     Indication: PRODUCT USED FOR UNKNOWN INDICATION
     Dosage: 250 UNK, UNK
     Dates: start: 20180405
  2. CARBOPLATIN. [Suspect]
     Active Substance: CARBOPLATIN
     Dosage: 390 MILLIGRAM
     Dates: start: 20180518, end: 20180518
  3. GEMCITABINE. [Suspect]
     Active Substance: GEMCITABINE
     Dosage: 1520 MILLIGRAM
     Dates: start: 20180518, end: 20180518
  4. CISPLATIN. [Suspect]
     Active Substance: CISPLATIN
     Indication: PRODUCT USED FOR UNKNOWN INDICATION
     Dosage: 140 MILLIGRAM
     Dates: start: 20180316, end: 20180316
  5. AVELUMAB [Suspect]
     Active Substance: AVELUMAB
     Dosage: 860 MILLIGRAM
     Dates: start: 20180405, end: 20180405
  6. ERYTHROPOIETIN [Concomitant]
     Active Substance: ERYTHROPOIETIN
     Dosage: UNK
  7. AMLOR [Concomitant]
     Active Substance: AMLODIPINE BESYLATE
     Dosage: UNK
  8. GEMCITABINE. [Suspect]
     Active Substance: GEMCITABINE
     Dosage: 1530 MILLIGRAM
     Dates: start: 20180405, end: 20180405
  9. GEMCITABINE. [Suspect]
     Active Substance: GEMCITABINE
     Dosage: 1500 MILLIGRAM
     Dates: start: 20180525, end: 20180525
  10. GEMCITABINE. [Suspect]
     Active Substance: GEMCITABINE
     Dosage: 1520 MILLIGRAM
     Dates: start: 20180427, end: 20180427
  11. GEMCITABINE. [Suspect]
     Active Substance: GEMCITABINE
     Dosage: 2080 MILLIGRAM
     Dates: start: 20180323, end: 20180323
  12. GEMZAR [Suspect]
     Active Substance: GEMCITABINE HYDROCHLORIDE
     Indication: PRODUCT USED FOR UNKNOWN INDICATION
     Dosage: 1480 UNK, UNK
     Dates: start: 20180316
  13. AVELUMAB [Suspect]
     Active Substance: AVELUMAB
     Dosage: 850 MILLIGRAM
     Dates: start: 20180427, end: 20180427
  14. VITAMIN B1 AND B6 [Concomitant]
     Active Substance: PYRIDOXINE HYDROCHLORIDE\THIAMINE HYDROCHLORIDE
     Dosage: UNK
  15. INNOHEP [Concomitant]
     Active Substance: TINZAPARIN SODIUM
     Indication: PULMONARY EMBOLISM
     Dosage: UNK
  16. AVELUMAB [Suspect]
     Active Substance: AVELUMAB
     Dosage: 820 MILLIGRAM
     Dates: start: 20180518, end: 20180518
  17. AVELUMAB [Suspect]
     Active Substance: AVELUMAB
     Dosage: 860 MILLIGRAM
     Dates: start: 20180316, end: 20180316
  18. AVELUMAB [Suspect]
     Active Substance: AVELUMAB
     Dosage: 790 MILLIGRAM
     Dates: start: 20180615
  19. CARBOPLATIN. [Suspect]
     Active Substance: CARBOPLATIN
     Dosage: 320 MILLIGRAM
     Dates: start: 20180427, end: 20180427
  20. CARBOPLATIN. [Suspect]
     Active Substance: CARBOPLATIN
     Dosage: 340 MILLIGRAM
     Dates: start: 20180405, end: 20180405
  21. GEMCITABINE. [Suspect]
     Active Substance: GEMCITABINE
     Dosage: 1520 MILLIGRAM
     Dates: start: 20180504, end: 20180504
  22. GEMCITABINE. [Suspect]
     Active Substance: GEMCITABINE
     Dosage: 1520 MILLIGRAM
     Dates: start: 20180413, end: 20180413
  23. GEMCITABINE. [Suspect]
     Active Substance: GEMCITABINE
     Dosage: 1480 MILLIGRAM
     Dates: start: 20180615
  24. AVELUMAB [Suspect]
     Active Substance: AVELUMAB
     Indication: PRODUCT USED FOR UNKNOWN INDICATION
     Dosage: 790 UNK, UNK
     Dates: start: 20180316
  25. ZOPHREN                            /00955302/ [Concomitant]
     Active Substance: ONDANSETRON
     Dosage: UNK
  26. GEMCITABINE. [Suspect]
     Active Substance: GEMCITABINE
     Indication: PRODUCT USED FOR UNKNOWN INDICATION
     Dosage: 1460 MILLIGRAM
     Dates: start: 20180622
  27. GEMCITABINE. [Suspect]
     Active Substance: GEMCITABINE
     Dosage: 2040 MILLIGRAM
     Dates: start: 20180316, end: 20180316
  28. CARBOPLATIN. [Suspect]
     Active Substance: CARBOPLATIN
     Dosage: 250 MILLIGRAM
     Dates: start: 20180615
  29. GEMZAR [Suspect]
     Active Substance: GEMCITABINE HYDROCHLORIDE
     Dosage: UNK
     Dates: start: 20180622

REACTIONS (4)
  - Renal failure [Not Recovered/Not Resolved]
  - Condition aggravated [Recovered/Resolved with Sequelae]
  - Nausea [Recovered/Resolved]
  - Vomiting [Recovered/Resolved]

NARRATIVE: CASE EVENT DATE: 20180625
